FAERS Safety Report 8287085-X (Version None)
Quarter: 2012Q2

REPORT INFORMATION
  Report Type: 
  Country: None (occurrence: None)
  Receive Date: 20120416
  Receipt Date: 20120222
  Transmission Date: 20120825
  Serious: No
  Sender: FDA-Public Use
  Company Number: US-ALLERGAN-1202492US

PATIENT
  Age: 85 Year
  Sex: Female

DRUGS (2)
  1. PREDNISOLONE ACETATE [Suspect]
     Indication: POSTOPERATIVE CARE
     Dosage: 1 DROP TO THE LEFT EYE, EVERY 4 TO 6 HOURS AS NEEDED
     Route: 047
     Dates: start: 20120212
  2. ZYMAXID [Suspect]
     Indication: POSTOPERATIVE CARE
     Dosage: 1 GTT, BID
     Route: 047
     Dates: start: 20120212, end: 20120219

REACTIONS (3)
  - EYE PAIN [None]
  - PHOTOPHOBIA [None]
  - OCULAR DISCOMFORT [None]
